FAERS Safety Report 10235771 (Version 1)
Quarter: 2014Q1

REPORT INFORMATION
  Report Type: Spontaneous
  Country: US (occurrence: None)
  Receive Date: 20140306
  Receipt Date: 20140306
  Transmission Date: 20141002
  Serious: Yes (Other)
  Sender: FDA-Public Use
  Company Number: 163-21880-13014568

PATIENT
  Age: 67 Year
  Sex: Male
  Weight: 30.39 kg

DRUGS (7)
  1. REVLIMID [Suspect]
     Indication: PLASMA CELL MYELOMA
     Dosage: 25 MG, 21 IN 28 D, PO
     Route: 048
     Dates: start: 20100714
  2. OMEPRAZOLE(OMEPRAZOLE)(UKNOWN) [Concomitant]
  3. DEXAMETHASONE(DEXAMETHASONE) [Concomitant]
  4. WARAFARIN(WARFARIN) [Concomitant]
  5. DULCOLAX(BISACODYL) [Concomitant]
  6. CALCIUM + D (OS-CAL)(UKNOWN) [Concomitant]
  7. ZOFRAN(ONDANSETRON HYDROCHLORIDE)(UKNOWN [Concomitant]

REACTIONS (3)
  - Abdominal pain upper [None]
  - Lower respiratory tract infection fungal [None]
  - Drug dose omission [None]
